FAERS Safety Report 25784478 (Version 1)
Quarter: 2025Q3

REPORT INFORMATION
  Report Type: Spontaneous
  Country: EU (occurrence: EU)
  Receive Date: 20250910
  Receipt Date: 20250910
  Transmission Date: 20251021
  Serious: Yes (Hospitalization, Other)
  Sender: CELLTRION
  Company Number: EU-SAMSUNG BIOEPIS-SB-2025-11791

PATIENT

DRUGS (3)
  1. INFLIXIMAB [Suspect]
     Active Substance: INFLIXIMAB
     Indication: Crohn^s disease
     Route: 065
     Dates: start: 202206
  2. USTEKINUMAB [Suspect]
     Active Substance: USTEKINUMAB
     Indication: Crohn^s disease
     Route: 042
     Dates: start: 202206
  3. USTEKINUMAB [Suspect]
     Active Substance: USTEKINUMAB
     Route: 042
     Dates: start: 202304

REACTIONS (3)
  - Pneumothorax [Recovered/Resolved]
  - Subcutaneous abscess [Recovered/Resolved]
  - Paradoxical psoriasis [Recovering/Resolving]
